FAERS Safety Report 13877410 (Version 1)
Quarter: 2017Q3

REPORT INFORMATION
  Report Type: Spontaneous
  Country: HU (occurrence: HU)
  Receive Date: 20170817
  Receipt Date: 20170817
  Transmission Date: 20171127
  Serious: Yes (Hospitalization)
  Sender: FDA-Public Use
  Company Number: HU-PFIZER INC-2017351822

PATIENT
  Age: 87 Year
  Sex: Female

DRUGS (6)
  1. CLINDAMYCIN KABI [Suspect]
     Active Substance: CLINDAMYCIN
     Indication: ERYSIPELAS
     Dosage: 600 MG, 3X/DAY
     Route: 042
     Dates: start: 20170623, end: 20170629
  2. ADEXOR MR [Concomitant]
     Dosage: 35 MG, 2X/DAY
  3. TALLITON [Concomitant]
     Dosage: 12.5 MG, 1X
  4. DALACIN [Suspect]
     Active Substance: CLINDAMYCIN
     Indication: ERYSIPELAS
     Dosage: 300 MG, 3X/DAY
     Route: 048
     Dates: start: 20170630, end: 20170702
  5. NORVASC [Concomitant]
     Active Substance: AMLODIPINE BESYLATE
     Dosage: 5 MG, 2X/DAY
  6. TENAXUM [Concomitant]
     Active Substance: RILMENIDINE
     Dosage: 1 MG, 2X/DAY

REACTIONS (1)
  - Toxic skin eruption [Recovered/Resolved]

NARRATIVE: CASE EVENT DATE: 20170701
